FAERS Safety Report 7550365-7 (Version None)
Quarter: 2011Q2

REPORT INFORMATION
  Report Type: 
  Country: None (occurrence: None)
  Receive Date: 20110615
  Receipt Date: 20110607
  Transmission Date: 20111010
  Serious: Yes (Other)
  Sender: FDA-Public Use
  Company Number: US-ROCHE-737543

PATIENT
  Sex: Female
  Weight: 58.1 kg

DRUGS (2)
  1. ACCUTANE [Suspect]
     Route: 065
     Dates: start: 19861110, end: 19870405
  2. ACCUTANE [Suspect]
     Indication: ACNE
     Route: 065
     Dates: start: 19820101, end: 19840101

REACTIONS (16)
  - COLITIS ULCERATIVE [None]
  - ANAL FISSURE [None]
  - NASAL DRYNESS [None]
  - HAEMORRHOIDS [None]
  - DEPRESSION [None]
  - INFLAMMATORY BOWEL DISEASE [None]
  - EYE PAIN [None]
  - BLOOD TRIGLYCERIDES INCREASED [None]
  - HEADACHE [None]
  - BLOOD CHOLESTEROL INCREASED [None]
  - PRURITUS [None]
  - INTESTINAL HAEMORRHAGE [None]
  - GASTROINTESTINAL INJURY [None]
  - ARTHRITIS [None]
  - IRRITABLE BOWEL SYNDROME [None]
  - LIP DRY [None]
